FAERS Safety Report 19652611 (Version 1)
Quarter: 2021Q3

REPORT INFORMATION
  Report Type: Spontaneous
  Country: US (occurrence: US)
  Receive Date: 20210803
  Receipt Date: 20210803
  Transmission Date: 20211014
  Serious: No
  Sender: FDA-Public Use
  Company Number: US-PFIZER INC-202100918367

PATIENT
  Age: 68 Year
  Sex: Female
  Weight: 77.11 kg

DRUGS (1)
  1. LORBRENA [Suspect]
     Active Substance: LORLATINIB
     Indication: NON-SMALL CELL LUNG CANCER METASTATIC
     Dosage: 100 MG, DAILY
     Route: 048
     Dates: start: 202105, end: 2021

REACTIONS (8)
  - Condition aggravated [Not Recovered/Not Resolved]
  - Lipids increased [Unknown]
  - Blood cholesterol increased [Unknown]
  - Spinal stenosis [Unknown]
  - Arthralgia [Not Recovered/Not Resolved]
  - Mood swings [Not Recovered/Not Resolved]
  - Intervertebral disc protrusion [Unknown]
  - Memory impairment [Not Recovered/Not Resolved]

NARRATIVE: CASE EVENT DATE: 2021
